FAERS Safety Report 10227509 (Version 1)
Quarter: 2014Q2

REPORT INFORMATION
  Report Type: Spontaneous
  Country: US (occurrence: US)
  Receive Date: 20140610
  Receipt Date: 20140610
  Transmission Date: 20141212
  Serious: No
  Sender: FDA-Public Use
  Company Number: US-VIIV HEALTHCARE LIMITED-A1068879A

PATIENT
  Age: 49 Year
  Sex: Male

DRUGS (3)
  1. TIVICAY [Suspect]
     Indication: PRODUCT USED FOR UNKNOWN INDICATION
     Dosage: 50MG PER DAY
     Route: 048
     Dates: start: 20140226
  2. EPIVIR [Concomitant]
  3. OTHER MEDICATIONS [Concomitant]

REACTIONS (1)
  - Vomiting [Unknown]
